FAERS Safety Report 10529701 (Version 1)
Quarter: 2014Q4

REPORT INFORMATION
  Report Type: Report from Study
  Country: GB (occurrence: GB)
  Receive Date: 20141021
  Receipt Date: 20141021
  Transmission Date: 20150528
  Serious: Yes (Hospitalization, Other)
  Sender: FDA-Public Use
  Company Number: GB-ACCORD-026519

PATIENT
  Age: 15 Year
  Sex: Female

DRUGS (19)
  1. MORPHINE [Concomitant]
     Active Substance: MORPHINE
     Dosage: PUMP PRN
     Dates: start: 20140618, end: 20140619
  2. METHYLPREDNISOLONE. [Concomitant]
     Active Substance: METHYLPREDNISOLONE
     Indication: RENAL TRANSPLANT
     Dosage: 30 MG, BID
     Route: 042
     Dates: start: 20140617
  3. DOCUSATE [Concomitant]
     Active Substance: DOCUSATE
     Indication: LAXATIVE SUPPORTIVE CARE
     Dosage: 12.5 MG, TID (TDS)
     Route: 048
     Dates: start: 20130905
  4. COTRIMOXAZOLE [Concomitant]
     Active Substance: SULFAMETHOXAZOLE\TRIMETHOPRIM
     Indication: PROPHYLAXIS
     Dosage: 960 MG, QD
     Route: 048
     Dates: start: 20140617
  5. RANITIDINE [Concomitant]
     Active Substance: RANITIDINE\RANITIDINE HYDROCHLORIDE
     Indication: ANTACID THERAPY
     Dosage: 50 MG, BID
     Route: 048
     Dates: start: 20140617
  6. NYSTATIN/NYSTATIN/LIPOSOME [Concomitant]
     Indication: PROPHYLAXIS
     Dosage: 1 ML, QID (QDS)
     Route: 048
     Dates: start: 20140719
  7. PARACETAMOL [Concomitant]
     Active Substance: ACETAMINOPHEN
     Indication: PAIN
     Dosage: 1 G, QID (QDS)
     Route: 048
     Dates: start: 20140718
  8. CETIRIZINE [Concomitant]
     Active Substance: CETIRIZINE HYDROCHLORIDE
     Indication: ANTIALLERGIC THERAPY
     Dosage: 10 MG, BID
     Route: 048
     Dates: start: 20140617, end: 20140619
  9. LACTULOSE. [Concomitant]
     Active Substance: LACTULOSE
     Indication: LAXATIVE SUPPORTIVE CARE
     Dosage: 20 ML, BID
     Route: 048
     Dates: start: 20130905
  10. CIPROFLOXACIN. [Concomitant]
     Active Substance: CIPROFLOXACIN
     Indication: ANTIBIOTIC PROPHYLAXIS
     Dosage: 320 MG, QD
     Route: 042
     Dates: start: 20140617, end: 20140619
  11. ACETYLSALICYLIC ACID [Concomitant]
     Active Substance: ASPIRIN
     Indication: ANTICOAGULANT THERAPY
     Dosage: 75 MG, QD
     Route: 048
     Dates: start: 20140618, end: 20140619
  12. VALGANCICLOVIR/VALGANCICLOVIR HYDROCHLORIDE [Concomitant]
     Indication: PROPHYLAXIS
     Dosage: 450 MG, QD
     Route: 048
     Dates: start: 20140618
  13. EVEROLIMUS [Suspect]
     Active Substance: EVEROLIMUS
     Indication: RENAL TRANSPLANT
     Dosage: 3.0 MG, BID (RUN IN PHASE)
     Route: 048
     Dates: start: 20140722
  14. CHLORAMPHENICOL [Concomitant]
     Active Substance: CHLORAMPHENICOL
     Indication: ANTIALLERGIC THERAPY
     Dosage: 4 MG, BID
     Route: 048
     Dates: start: 20140617, end: 20140619
  15. MYCOPHENOLIC ACID. [Concomitant]
     Active Substance: MYCOPHENOLIC ACID
     Indication: RENAL TRANSPLANT
     Dosage: 1000 MG, BID
     Route: 048
     Dates: start: 20140617
  16. PREDNISOLONE. [Concomitant]
     Active Substance: PREDNISOLONE
     Indication: RENAL TRANSPLANT
     Dosage: 40 MG, QD
     Route: 048
     Dates: start: 20140617
  17. TACROLIMUS. [Suspect]
     Active Substance: TACROLIMUS
     Indication: RENAL TRANSPLANT
     Dosage: 5.5 MG, BID
     Route: 048
     Dates: start: 20140617, end: 20140701
  18. SODIUM BICARBONATE. [Concomitant]
     Active Substance: SODIUM BICARBONATE
     Indication: SUPPLEMENTATION THERAPY
     Dosage: 1000 MG, TID
     Route: 048
     Dates: start: 20140718
  19. FUROSEMIDE. [Concomitant]
     Active Substance: FUROSEMIDE
     Indication: DIURETIC THERAPY
     Dosage: 50 MG, UNK (STAT)
     Route: 042
     Dates: start: 20140618

REACTIONS (2)
  - Urinary tract infection [Recovered/Resolved]
  - Urinary bladder haemorrhage [Recovered/Resolved]

NARRATIVE: CASE EVENT DATE: 20140619
